FAERS Safety Report 12252968 (Version 1)
Quarter: 2016Q2

REPORT INFORMATION
  Report Type: Spontaneous
  Country: US (occurrence: US)
  Receive Date: 20160411
  Receipt Date: 20160411
  Transmission Date: 20160815
  Serious: No
  Sender: FDA-Public Use
  Company Number: US-ACTAVIS-2015-15222

PATIENT
  Age: 53 Year
  Sex: Female
  Weight: 63.95 kg

DRUGS (1)
  1. MICONAZOLE NITRATE (AMALLC) [Suspect]
     Active Substance: MICONAZOLE NITRATE
     Indication: FUNGAL INFECTION
     Dosage: UNK UNK, UNKNOWN
     Route: 065
     Dates: start: 20150702, end: 20150709

REACTIONS (2)
  - Pruritus [Not Recovered/Not Resolved]
  - Drug ineffective [Not Recovered/Not Resolved]
